FAERS Safety Report 5742962-6 (Version None)
Quarter: 2008Q2

REPORT INFORMATION
  Report Type: 
  Country: None (occurrence: None)
  Receive Date: 20080515
  Receipt Date: 20080515
  Transmission Date: 20081010
  Serious: Yes (Disabling)
  Sender: FDA-Public Use
  Company Number: None

PATIENT
  Age: 70 Year
  Sex: Female
  Weight: 58.514 kg

DRUGS (2)
  1. ARIMIDEX [Suspect]
     Indication: BREAST CANCER IN SITU
     Dosage: ONE MG ONE A DAY
     Dates: start: 20050305, end: 20080514
  2. ARIMIDEX [Suspect]
     Indication: PROPHYLAXIS
     Dosage: ONE MG ONE A DAY
     Dates: start: 20050305, end: 20080514

REACTIONS (2)
  - HEADACHE [None]
  - HYPERTENSION [None]
